FAERS Safety Report 6875193-7 (Version None)
Quarter: 2010Q3

REPORT INFORMATION
  Report Type: 
  Country: None (occurrence: None)
  Receive Date: 20100727
  Receipt Date: 20100713
  Transmission Date: 20110219
  Serious: Yes (Other)
  Sender: FDA-Public Use
  Company Number: PHHY2010IN36274

PATIENT
  Age: 65 Year
  Sex: Male

DRUGS (2)
  1. AFINITOR [Suspect]
     Indication: METASTASES TO LIVER
     Dosage: 10 MG, QD
     Route: 048
  2. ANALGESICS [Concomitant]
     Route: 061

REACTIONS (7)
  - DIARRHOEA [None]
  - MASTICATION DISORDER [None]
  - NAUSEA [None]
  - STOMATITIS [None]
  - TONGUE BLISTERING [None]
  - VERTIGO [None]
  - VOMITING [None]
